FAERS Safety Report 5513777-9 (Version None)
Quarter: 2007Q4

REPORT INFORMATION
  Report Type: 
  Country: None (occurrence: None)
  Receive Date: 20071113
  Receipt Date: 20071106
  Transmission Date: 20080405
  Serious: Yes (Hospitalization)
  Sender: FDA-Public Use
  Company Number: PHEH2007US14585

PATIENT
  Sex: Female
  Weight: 49.433 kg

DRUGS (1)
  1. EXELON [Suspect]
     Route: 062

REACTIONS (1)
  - CONDITION AGGRAVATED [None]
